FAERS Safety Report 20601880 (Version 3)
Quarter: 2022Q3

REPORT INFORMATION
  Report Type: Spontaneous
  Country: JP (occurrence: JP)
  Receive Date: 20220316
  Receipt Date: 20220715
  Transmission Date: 20221026
  Serious: No
  Sender: FDA-Public Use
  Company Number: JP-GLAXOSMITHKLINE-JP2022JPN044477

PATIENT

DRUGS (10)
  1. SOTROVIMAB [Suspect]
     Active Substance: SOTROVIMAB
     Indication: COVID-19
     Dosage: 500 MG, SINGLE
     Dates: start: 20220214
  2. VEKLURY [Suspect]
     Active Substance: REMDESIVIR
     Indication: COVID-19
     Dosage: 200 MG FOR THE FIRST DAY, 100 MG FOR THE SECOND AND THIRD DAY, DOSING NUMBER: 3
     Dates: start: 20220211, end: 20220213
  3. ACETAMINOPHEN [Concomitant]
     Active Substance: ACETAMINOPHEN
     Indication: Postoperative analgesia
     Dosage: 400 MG, TID, AFTER BREAKFAST, LUNCH, DINNER
  4. ACETAMINOPHEN [Concomitant]
     Active Substance: ACETAMINOPHEN
     Dosage: 400 MG, BID, AFTER BREAKFAST AND DINNER
     Dates: start: 20220209
  5. ACETAMINOPHEN [Concomitant]
     Active Substance: ACETAMINOPHEN
     Dosage: 400 MG, FOR FEVER OVER 38.0 DEGREES C
  6. SENNOSIDES [Concomitant]
     Active Substance: SENNOSIDES
     Indication: Constipation
     Dosage: 12 MG, QD, BEFORE BEDTIME
  7. ZOLPIDEM TARTRATE OD TABLET [Concomitant]
     Indication: Insomnia
     Dosage: 5 MG, QD, BEFORE BEDTIME
  8. AMITIZA CAPSULE [Concomitant]
     Indication: Constipation
     Dosage: 24 ?G, QD, AFTER DINNER
  9. POLAPREZINC OD TABLET SAWAI [Concomitant]
     Indication: Mineral supplementation
     Dosage: 75 MG, QD, AFTER DINNER
  10. GLUCONSAN K FINE GRANULES [Concomitant]
     Dosage: 1 DF, QD, AFTER DINNER

REACTIONS (2)
  - Platelet count decreased [Recovered/Resolved]
  - Haemoglobin decreased [Not Recovered/Not Resolved]

NARRATIVE: CASE EVENT DATE: 20220228
